FAERS Safety Report 9357469 (Version 1)
Quarter: 2013Q2

REPORT INFORMATION
  Report Type: Report from Study
  Country: US (occurrence: US)
  Receive Date: 20130620
  Receipt Date: 20130620
  Transmission Date: 20140414
  Serious: Yes (Hospitalization)
  Sender: FDA-Public Use
  Company Number: US-ROCHE-1239048

PATIENT
  Age: 71 Year
  Sex: Female
  Weight: 85.45 kg

DRUGS (3)
  1. BEVACIZUMAB [Suspect]
     Indication: ENDOMETRIAL CANCER RECURRENT
     Dosage: OVER 30-90 MINUTES ON DAY 1 (STARTING WITH CYCLE 2 FOR THOSE PTS ENTERING POST SURGERY) X 6 CYCLES,
     Route: 042
     Dates: start: 20110712, end: 20130604
  2. PACLITAXEL [Suspect]
     Indication: ENDOMETRIAL CANCER RECURRENT
     Dosage: LAST DOSE PRIOR TO SAE: 01/NOV/2011
     Route: 042
     Dates: start: 20110712, end: 20130604
  3. CARBOPLATIN [Suspect]
     Indication: ENDOMETRIAL CANCER RECURRENT
     Dosage: AUC = 6 OVER 30 MINUTES ON DAY 1 X 6 CYCLES, LAST DOSE PRIOR TO SAE: 01/NOV/2011
     Route: 042
     Dates: start: 20110712, end: 20130604

REACTIONS (1)
  - Cerebrovascular accident [Not Recovered/Not Resolved]
